FAERS Safety Report 25971794 (Version 1)
Quarter: 2025Q4

REPORT INFORMATION
  Report Type: Spontaneous
  Country: US (occurrence: US)
  Receive Date: 20251029
  Receipt Date: 20251029
  Transmission Date: 20260118
  Serious: Yes (Other)
  Sender: TEVA
  Company Number: US-ACTAVIS-2008-02350

PATIENT
  Age: 43 Year
  Sex: Female
  Weight: 61.224 kg

DRUGS (47)
  1. NORCO [Suspect]
     Active Substance: ACETAMINOPHEN\HYDROCODONE BITARTRATE
     Indication: Back pain
     Dosage: DOSAGE TEXT: 20 MG, Q4H
     Route: 065
     Dates: end: 20020822
  2. NORCO [Suspect]
     Active Substance: ACETAMINOPHEN\HYDROCODONE BITARTRATE
     Indication: Back pain
     Dosage: DOSAGE TEXT: UNK, UNKNOWN? 10/325 (WATSON LABORATORIES)
     Route: 065
     Dates: start: 20000105
  3. MORPHINE SULFATE [Suspect]
     Active Substance: MORPHINE SULFATE
     Indication: Product used for unknown indication
     Dosage: DOSAGE TEXT: 15 MG, UNKNOWN
     Route: 065
     Dates: start: 20041210
  4. ENDOCET [Suspect]
     Active Substance: ACETAMINOPHEN\OXYCODONE HYDROCHLORIDE
     Indication: Product used for unknown indication
     Dosage: DOSAGE TEXT: 5/325 MG, UNKNOWN
     Route: 065
     Dates: start: 20060329
  5. VICODIN ES [Suspect]
     Active Substance: ACETAMINOPHEN\HYDROCODONE BITARTRATE
     Indication: Product used for unknown indication
     Dosage: DOSAGE TEXT: 7.5/750 MG, UNKNOWN
     Route: 065
     Dates: start: 20040507
  6. KADIAN [Suspect]
     Active Substance: MORPHINE SULFATE
     Indication: Product used for unknown indication
     Dosage: DOSAGE TEXT: 100 MG, BID?^ZENECA^
     Route: 065
     Dates: start: 20060828, end: 20070130
  7. DILAUDID [Suspect]
     Active Substance: HYDROMORPHONE HYDROCHLORIDE
     Indication: Product used for unknown indication
     Dosage: TIME INTERVAL: 0.333 DAYS: DOSAGE TEXT: 4 MG, TID
     Route: 048
     Dates: start: 20060919, end: 20070131
  8. DILAUDID [Suspect]
     Active Substance: HYDROMORPHONE HYDROCHLORIDE
     Indication: Product used for unknown indication
     Dosage: DOSAGE TEXT: 4 MG, QID
     Route: 048
     Dates: start: 20060213, end: 20060918
  9. VALIUM [Concomitant]
     Active Substance: DIAZEPAM
     Indication: Product used for unknown indication
     Dosage: DOSAGE TEXT: UNK, UNKNOWN
     Route: 065
     Dates: start: 20000104
  10. ZANAFLEX [Concomitant]
     Active Substance: TIZANIDINE HYDROCHLORIDE
     Indication: Product used for unknown indication
     Dosage: DOSAGE TEXT: UNK, UNKNOWN
     Route: 065
     Dates: start: 20000105
  11. DESYREL [Concomitant]
     Active Substance: TRAZODONE HYDROCHLORIDE
     Indication: Product used for unknown indication
     Dosage: DOSAGE TEXT: UNK, UNKNOWN
     Route: 065
     Dates: start: 20060130
  12. DESYREL [Concomitant]
     Active Substance: TRAZODONE HYDROCHLORIDE
     Indication: Product used for unknown indication
     Dosage: DOSAGE TEXT: UNK, UNKNOWN
     Route: 065
     Dates: start: 20000117, end: 20020822
  13. DESYREL [Concomitant]
     Active Substance: TRAZODONE HYDROCHLORIDE
     Indication: Product used for unknown indication
     Dosage: DOSAGE TEXT: UNK, UNKNOWN
     Route: 065
     Dates: start: 20020823
  14. ATIVAN [Concomitant]
     Active Substance: LORAZEPAM
     Indication: Product used for unknown indication
     Dosage: DOSAGE TEXT: UNK, UNKNOWN
     Route: 065
     Dates: start: 20070202
  15. ATIVAN [Concomitant]
     Active Substance: LORAZEPAM
     Indication: Product used for unknown indication
     Dosage: DOSAGE TEXT: UNK, UNKNOWN
     Route: 065
     Dates: start: 20020411
  16. ZOLOFT [Concomitant]
     Active Substance: SERTRALINE HYDROCHLORIDE
     Indication: Product used for unknown indication
     Dosage: DOSAGE TEXT: UNK, UNKNOWN
     Route: 065
     Dates: start: 20020823
  17. ZOLOFT [Concomitant]
     Active Substance: SERTRALINE HYDROCHLORIDE
     Indication: Product used for unknown indication
     Dosage: DOSAGE TEXT: UNK, UNKNOWN
     Route: 065
     Dates: start: 20011207, end: 20020822
  18. ZOLOFT [Concomitant]
     Active Substance: SERTRALINE HYDROCHLORIDE
     Indication: Product used for unknown indication
     Dosage: DOSAGE TEXT: UNK, UNKNOWN
     Route: 065
     Dates: start: 20010307
  19. ACTIQ [Suspect]
     Active Substance: FENTANYL CITRATE
     Indication: Back pain
     Dosage: DOSAGE TEXT: VARIBLE DOSING
     Route: 002
     Dates: start: 20020506, end: 20070130
  20. NEURONTIN [Concomitant]
     Active Substance: GABAPENTIN
     Indication: Product used for unknown indication
     Dosage: DOSAGE TEXT: UNK, UNKNOWN
     Route: 065
     Dates: start: 20030609
  21. NEURONTIN [Concomitant]
     Active Substance: GABAPENTIN
     Indication: Product used for unknown indication
     Dosage: DOSAGE TEXT: UNK, UNKNOWN
     Route: 065
     Dates: start: 20020903
  22. NEURONTIN [Concomitant]
     Active Substance: GABAPENTIN
     Indication: Product used for unknown indication
     Dosage: DOSAGE TEXT: UNK, UNKNOWN
     Route: 065
     Dates: start: 20020822
  23. NEURONTIN [Concomitant]
     Active Substance: GABAPENTIN
     Indication: Product used for unknown indication
     Dosage: DOSAGE TEXT: UNK, UNKNOWN
     Route: 065
     Dates: start: 20020104
  24. NEURONTIN [Concomitant]
     Active Substance: GABAPENTIN
     Indication: Product used for unknown indication
     Dosage: DOSAGE TEXT: UNK, UNKNOWN
     Route: 065
     Dates: start: 20011109
  25. SEROQUEL [Concomitant]
     Active Substance: QUETIAPINE FUMARATE
     Indication: Product used for unknown indication
     Dosage: DOSAGE TEXT: UNK, UNKNOWN
     Route: 065
     Dates: start: 20050519
  26. SEROQUEL [Concomitant]
     Active Substance: QUETIAPINE FUMARATE
     Indication: Product used for unknown indication
     Dosage: DOSAGE TEXT: UNK, UNKNOWN
     Route: 065
     Dates: start: 20050421, end: 20050518
  27. SEROQUEL [Concomitant]
     Active Substance: QUETIAPINE FUMARATE
     Indication: Product used for unknown indication
     Dosage: DOSAGE TEXT: UNK, UNKNOWN
     Route: 065
     Dates: start: 20040908, end: 20050420
  28. SEROQUEL [Concomitant]
     Active Substance: QUETIAPINE FUMARATE
     Indication: Product used for unknown indication
     Dosage: DOSAGE TEXT: UNK, UNKNOWN
     Route: 065
     Dates: start: 20030609, end: 20040907
  29. TOPAMAX [Concomitant]
     Active Substance: TOPIRAMATE
     Indication: Product used for unknown indication
     Dosage: DOSAGE TEXT: UNK, UNKNOWN
     Route: 065
     Dates: start: 20051109, end: 2006
  30. TOPAMAX [Concomitant]
     Active Substance: TOPIRAMATE
     Indication: Product used for unknown indication
     Dosage: DOSAGE TEXT: UNK, UNKNOWN
     Route: 065
     Dates: start: 20020822, end: 20051108
  31. WELLBUTRIN [Concomitant]
     Active Substance: BUPROPION HYDROCHLORIDE
     Indication: Product used for unknown indication
     Dosage: DOSAGE TEXT: UNK, UNKNOWN
     Route: 065
     Dates: start: 20050526
  32. WELLBUTRIN [Concomitant]
     Active Substance: BUPROPION HYDROCHLORIDE
     Indication: Product used for unknown indication
     Dosage: DOSAGE TEXT: UNK, UNKNOWN
     Route: 065
     Dates: start: 20050518, end: 20050525
  33. LORCET [Suspect]
     Active Substance: ACETAMINOPHEN\HYDROCODONE BITARTRATE
     Indication: Back pain
     Dosage: TIME INTERVAL: AS NECESSARY: DOSAGE TEXT: UNK, PRN
     Route: 065
     Dates: start: 19991027
  34. OXYCONTIN [Suspect]
     Active Substance: OXYCODONE HYDROCHLORIDE
     Indication: Back pain
     Dosage: DOSAGE TEXT: 100 MG, DAILY
     Route: 065
     Dates: end: 20020822
  35. OXYCONTIN [Suspect]
     Active Substance: OXYCODONE HYDROCHLORIDE
     Indication: Back pain
     Dosage: DOSAGE TEXT: 140 MG, DAILY
     Route: 065
     Dates: start: 19991027
  36. ROXICET [Suspect]
     Active Substance: ACETAMINOPHEN\OXYCODONE HYDROCHLORIDE
     Indication: Product used for unknown indication
     Dosage: DOSAGE TEXT: 5/325 MG, UNKNOWN
     Route: 065
     Dates: start: 20001109
  37. STADOL NS [Suspect]
     Active Substance: BUTORPHANOL TARTRATE
     Indication: Back pain
     Dosage: DOSAGE TEXT: 10 MG/ML, UNK
     Route: 045
     Dates: start: 20011109
  38. OXYCODONE HYDROCHLORIDE [Suspect]
     Active Substance: OXYCODONE HYDROCHLORIDE
     Indication: Product used for unknown indication
     Dosage: DOSAGE TEXT: 10 MG, QID
     Route: 065
     Dates: start: 2002, end: 2002
  39. METHADONE [Suspect]
     Active Substance: METHADONE HYDROCHLORIDE
     Indication: Product used for unknown indication
     Dosage: DOSAGE TEXT: 10 MG, QID
     Route: 065
     Dates: start: 20030610, end: 20040907
  40. METHADONE [Suspect]
     Active Substance: METHADONE HYDROCHLORIDE
     Indication: Product used for unknown indication
     Dosage: TIME INTERVAL: 0.333 DAYS: DOSAGE TEXT: 20 MG, TID
     Route: 065
     Dates: start: 20020904, end: 20030609
  41. METHADONE [Suspect]
     Active Substance: METHADONE HYDROCHLORIDE
     Indication: Product used for unknown indication
     Dosage: TIME INTERVAL: 0.333 DAYS: DOSAGE TEXT: 10 MG, TID
     Route: 065
     Dates: start: 20020822, end: 20020903
  42. DURAGESIC [Suspect]
     Active Substance: FENTANYL
     Indication: Back pain
     Dosage: DOSAGE TEXT: 75 UG, Q1H
     Route: 062
     Dates: start: 20070203, end: 200705
  43. DURAGESIC [Suspect]
     Active Substance: FENTANYL
     Indication: Back pain
     Dosage: DOSAGE TEXT: 100 UG, Q1H
     Route: 062
     Dates: start: 20060131, end: 20070202
  44. DURAGESIC [Suspect]
     Active Substance: FENTANYL
     Indication: Back pain
     Dosage: DOSAGE TEXT: 75 UG, Q1H
     Route: 062
     Dates: start: 20051109, end: 20060130
  45. DURAGESIC [Suspect]
     Active Substance: FENTANYL
     Indication: Back pain
     Dosage: DOSAGE TEXT: 100 UG, Q1H
     Route: 062
     Dates: start: 20050519, end: 20051108
  46. DURAGESIC [Suspect]
     Active Substance: FENTANYL
     Indication: Back pain
     Dosage: DOSAGE TEXT: 150 UG, Q1H
     Route: 062
     Dates: start: 20050225, end: 20050518
  47. DURAGESIC [Suspect]
     Active Substance: FENTANYL
     Indication: Back pain
     Dosage: DOSAGE TEXT: 75 UG, Q1H
     Route: 062
     Dates: start: 20040907, end: 20050224

REACTIONS (10)
  - Drug abuse [Unknown]
  - Tooth loss [Unknown]
  - Drug dependence [Unknown]
  - Partner stress [Unknown]
  - Abnormal behaviour [Unknown]
  - Dysarthria [Unknown]
  - Depression [Unknown]
  - Tooth abscess [Unknown]
  - Dental caries [Unknown]
  - Overdose [Unknown]

NARRATIVE: CASE EVENT DATE: 20020701
